FAERS Safety Report 26073949 (Version 2)
Quarter: 2025Q4

REPORT INFORMATION
  Report Type: Spontaneous
  Country: EU (occurrence: EU)
  Receive Date: 20251121
  Receipt Date: 20251210
  Transmission Date: 20260117
  Serious: Yes (Hospitalization, Other)
  Sender: AUROBINDO
  Company Number: EU-ABBVIE-6412910

PATIENT
  Age: 66 Year
  Sex: Male

DRUGS (17)
  1. RIVASTIGMINE [Suspect]
     Active Substance: RIVASTIGMINE
     Indication: Parkinson^s disease
     Dosage: 1 DOSAGE FORM, ONCE A DAY
     Dates: start: 202509, end: 20251102
  2. CARBIDOPA\LEVODOPA [Suspect]
     Active Substance: CARBIDOPA\LEVODOPA
     Indication: Dementia with Lewy bodies
     Dosage: UNK (20 MG + 5 MG, MOR:8CC;MAINT:2.8CC/H;EXTR:2CC)
  3. CARBIDOPA\LEVODOPA [Suspect]
     Active Substance: CARBIDOPA\LEVODOPA
     Dosage: UNK (20 MG + 5 MG, MOR:16CC;MAINT:5;EXTR:3.5CC )
  4. CARBIDOPA\LEVODOPA [Suspect]
     Active Substance: CARBIDOPA\LEVODOPA
     Dosage: UNK (20 MG + 5 MG (GASTRIC), LAST ADMIN DATE: 2025, MOR:16CC;MAINT:5;EXTR:3.5CC)
     Dates: start: 20250731, end: 20250820
  5. CARBIDOPA\LEVODOPA [Suspect]
     Active Substance: CARBIDOPA\LEVODOPA
     Dosage: UNK (20 MG + 5 MG (GASTRIC), FIRST ADMIN DATE: 2025, MOR:10CC;MAINT:5;EXTR:4.5CC)
  6. CARBIDOPA\LEVODOPA [Suspect]
     Active Substance: CARBIDOPA\LEVODOPA
     Dosage: UNK (MORNING 10 ML; CONTINUOUS 3.8 ML/H; EXTRA 5 ML. GASTRIC PERFUSION)
  7. MINIRIN [Concomitant]
     Active Substance: DESMOPRESSIN ACETATE
     Indication: Hypertonic bladder
     Dosage: UNK UNK, ONCE A DAY (~1 TABLET AT BEDTIME, BEFORE DUODOPA)
  8. MIDODRINE HYDROCHLORIDE [Concomitant]
     Active Substance: MIDODRINE HYDROCHLORIDE
     Indication: Orthostatic hypotension
     Dosage: 2 DOSAGE FORM (4 TABLET, BEFORE DUODOPA)
  9. BENSERAZIDE HYDROCHLORIDE\LEVODOPA [Concomitant]
     Active Substance: BENSERAZIDE HYDROCHLORIDE\LEVODOPA
     Indication: Product used for unknown indication
     Dosage: 1 DOSAGE FORM, ONCE A DAY (1 TABLET,AT BEDTIME)
     Route: 065
     Dates: start: 202508
  10. BETAHISTINE [Concomitant]
     Active Substance: BETAHISTINE
     Indication: Product used for unknown indication
     Dosage: UNK (START DATE TEXT: BEFORE DUODOPA)
  11. BENSERAZIDE HYDROCHLORIDE\LEVODOPA [Concomitant]
     Active Substance: BENSERAZIDE HYDROCHLORIDE\LEVODOPA
     Indication: Product used for unknown indication
     Dosage: UNK UNK, ONCE A DAY (1 TABLET,AT BEDTIME)
     Route: 065
     Dates: start: 202508
  12. MELAMIL [Concomitant]
     Indication: Product used for unknown indication
     Dosage: UNK UNK, ONCE A DAY (1 TABLET START DATE TEXT: AT BEDTIME, BEFORE DUODOPA)
  13. PANTOPRAZOLE [Concomitant]
     Active Substance: PANTOPRAZOLE
     Indication: Product used for unknown indication
     Dosage: 1 DOSAGE FORM (1 TABLET START DATE TEXT: BEFORE DUODOPA)
  14. QUETIAPINE [Concomitant]
     Active Substance: QUETIAPINE
     Indication: Product used for unknown indication
     Dosage: UNK (START DATE TEXT: BEFORE DUODOPA)
  15. RIVOTRIL [Concomitant]
     Active Substance: CLONAZEPAM
     Indication: Product used for unknown indication
     Dosage: UNK (BEFORE DUODOPA)
  16. CLOZAPINE [Concomitant]
     Active Substance: CLOZAPINE
     Indication: Product used for unknown indication
     Dosage: UNK
  17. CLOZAPINE [Concomitant]
     Active Substance: CLOZAPINE
     Dosage: 25 MILLIGRAM (ONE TABLET AT 7AM, HALF A TABLET AT 12PM, 4PM, AND 8PM)

REACTIONS (4)
  - Psychotic disorder [Recovered/Resolved]
  - Mobility decreased [Recovered/Resolved]
  - Aggression [Recovered/Resolved]
  - Skin reaction [Recovered/Resolved]

NARRATIVE: CASE EVENT DATE: 20250801
